FAERS Safety Report 17577305 (Version 2)
Quarter: 2020Q1

REPORT INFORMATION
  Report Type: Spontaneous
  Country: PT (occurrence: PT)
  Receive Date: 20200324
  Receipt Date: 20200327
  Transmission Date: 20200409
  Serious: Yes (Life-Threatening)
  Sender: FDA-Public Use
  Company Number: PT-TEVA-2020-PT-1206787

PATIENT
  Age: 75 Year
  Sex: Male

DRUGS (2)
  1. CARBOPLATIN. [Suspect]
     Active Substance: CARBOPLATIN
     Indication: ANAL CANCER METASTATIC
     Dosage: 474 MG 28/28 DAY CYCLE - 7TH CYCLE
     Route: 042
     Dates: start: 20200303, end: 20200303
  2. PACLITAXEL. [Concomitant]
     Active Substance: PACLITAXEL
     Route: 042

REACTIONS (8)
  - Vision blurred [Recovered/Resolved]
  - Rash macular [Recovered/Resolved]
  - Oxygen saturation decreased [Recovered/Resolved]
  - Hyperhidrosis [Recovered/Resolved]
  - Malaise [Recovered/Resolved]
  - Nausea [Recovered/Resolved]
  - Tachycardia [Recovered/Resolved]
  - Hypotension [Recovered/Resolved]

NARRATIVE: CASE EVENT DATE: 20200303
